FAERS Safety Report 5488541-X (Version None)
Quarter: 2007Q4

REPORT INFORMATION
  Report Type: 
  Country: None (occurrence: None)
  Receive Date: 20071016
  Receipt Date: 20071008
  Transmission Date: 20080405
  Serious: Yes (Hospitalization)
  Sender: FDA-Public Use
  Company Number: FR-ASTRAZENECA-2007CG01129

PATIENT
  Age: 952 Month
  Sex: Male
  Weight: 88 kg

DRUGS (6)
  1. INEXIUM [Suspect]
     Indication: HIATUS HERNIA
     Route: 048
     Dates: start: 20060501, end: 20070301
  2. INEXIUM [Suspect]
     Indication: BARRETT'S OESOPHAGUS
     Route: 048
     Dates: start: 20060501, end: 20070301
  3. INEXIUM [Suspect]
     Route: 048
     Dates: start: 20070301, end: 20070722
  4. INEXIUM [Suspect]
     Route: 048
     Dates: start: 20070301, end: 20070722
  5. TANAKAN [Concomitant]
     Route: 048
  6. KETOPROFEN [Concomitant]
     Indication: MYALGIA
     Route: 048
     Dates: start: 20070714, end: 20070724

REACTIONS (2)
  - MYALGIA [None]
  - PARAPARESIS [None]
